FAERS Safety Report 8159569-6 (Version None)
Quarter: 2012Q1

REPORT INFORMATION
  Report Type: 
  Country: None (occurrence: None)
  Receive Date: 20120223
  Receipt Date: 20120217
  Transmission Date: 20120608
  Serious: No
  Sender: FDA-Public Use
  Company Number: US-PFIZER INC-2012043389

PATIENT
  Sex: Female

DRUGS (8)
  1. PROMETHAZINE [Concomitant]
     Dosage: 25MG 1-2 PILLS 3X/DAY AS NEEDED
  2. EPIPEN [Concomitant]
     Dosage: 0.3 MG, AS NEEDED
  3. REFRESH [Concomitant]
     Dosage: 3-4 TIMES DAILY AS NEEDED
  4. BENADRYL [Concomitant]
     Dosage: 50 MG, AS NEEDED
  5. VENTOLIN [Concomitant]
     Dosage: 2 PUFFS EVERY 20MINS FOR 2HRS AS NEEDED
  6. LYRICA [Suspect]
     Dosage: 150 MG, 1X/DAY
     Route: 048
  7. MAG-OX [Concomitant]
     Dosage: 400 MG, 2X/DAY
  8. GUMMIES MULTIVITAMIN AND MINERAL SUPPLEMENT [Concomitant]
     Dosage: 2 DF, 2X/DAY

REACTIONS (3)
  - FIBROMYALGIA [None]
  - RASH [None]
  - RHINITIS ALLERGIC [None]
